FAERS Safety Report 11230797 (Version 1)
Quarter: 2015Q2

REPORT INFORMATION
  Report Type: Spontaneous
  Country: US (occurrence: None)
  Receive Date: 20150629
  Receipt Date: 20150629
  Transmission Date: 20150821
  Serious: Yes (Disabling)
  Sender: FDA-Public Use
  Company Number: None

PATIENT
  Age: 53 Year
  Sex: Female
  Weight: 62.14 kg

DRUGS (28)
  1. ACETAMINOPHEN AND HYDROCODONE 300 MG / 10 MG [Suspect]
     Active Substance: ACETAMINOPHEN\HYDROCODONE
     Indication: MULTIPLE SCLEROSIS
     Dosage: 1 PILL
     Route: 048
     Dates: start: 20150619, end: 20150621
  2. AMANTADINE [Concomitant]
     Active Substance: AMANTADINE
  3. VITAMIN D [Concomitant]
     Active Substance: CHOLECALCIFEROL
  4. ACETAMINOPHEN AND HYDROCODONE 300 MG / 10 MG [Suspect]
     Active Substance: ACETAMINOPHEN\HYDROCODONE
     Indication: INTERVERTEBRAL DISC PROTRUSION
     Dosage: 1 PILL
     Route: 048
     Dates: start: 20150619, end: 20150621
  5. COPAXONE (GLATIRAMER ACETATE DAILY INJECTION) [Concomitant]
  6. RELPAX [Concomitant]
     Active Substance: ELETRIPTAN HYDROBROMIDE
  7. VIVELLE-DOT PATCH [Concomitant]
  8. ACETAMINOPHEN AND HYDROCODONE 300 MG / 10 MG [Suspect]
     Active Substance: ACETAMINOPHEN\HYDROCODONE
     Indication: PAIN MANAGEMENT
     Dosage: 1 PILL
     Route: 048
     Dates: start: 20150619, end: 20150621
  9. WELLBUTRIN XL [Concomitant]
     Active Substance: BUPROPION HYDROCHLORIDE
  10. LEVOCETIRIZINE [Concomitant]
     Active Substance: LEVOCETIRIZINE
  11. AZELASTINE HCI (NASAL SOLUTION) [Concomitant]
  12. COQ10 [Concomitant]
     Active Substance: UBIDECARENONE
  13. VICADIN [Concomitant]
  14. ACETAMINOPHEN AND HYDROCODONE 300 MG / 10 MG [Suspect]
     Active Substance: ACETAMINOPHEN\HYDROCODONE
     Indication: FIBROMYALGIA
     Dosage: 1 PILL
     Route: 048
     Dates: start: 20150619, end: 20150621
  15. SYNTHROID [Concomitant]
     Active Substance: LEVOTHYROXINE SODIUM
  16. FLONASE [Concomitant]
     Active Substance: FLUTICASONE PROPIONATE
  17. FIORINAL [Concomitant]
     Active Substance: ASPIRIN\BUTALBITAL\CAFFEINE
  18. PANTOPRAZOLE SOD [Concomitant]
     Active Substance: PANTOPRAZOLE SODIUM
  19. METRONIDAZOLE TOPICAL GEL 1% [Concomitant]
  20. MIRALAX [Concomitant]
     Active Substance: POLYETHYLENE GLYCOL 3350
  21. MUCINEX [Concomitant]
     Active Substance: GUAIFENESIN
  22. PROBIOTIC [Concomitant]
     Active Substance: PROBIOTICS NOS
  23. ACETAMINOPHEN AND HYDROCODONE 300 MG / 10 MG [Suspect]
     Active Substance: ACETAMINOPHEN\HYDROCODONE
     Indication: POLYMYALGIA RHEUMATICA
     Dosage: 1 PILL
     Route: 048
     Dates: start: 20150619, end: 20150621
  24. STOOL SOFTNER [Concomitant]
  25. DIAZAPAN [Concomitant]
  26. ALPRAZOLAM. [Concomitant]
     Active Substance: ALPRAZOLAM
  27. BOTOX [Concomitant]
     Active Substance: ONABOTULINUMTOXINA
  28. CITRUCEL [Concomitant]
     Active Substance: METHYLCELLULOSE (4000 MPA.S)

REACTIONS (10)
  - Nausea [None]
  - Dizziness [None]
  - Tremor [None]
  - Malaise [None]
  - Product quality issue [None]
  - Inadequate analgesia [None]
  - Dyspnoea [None]
  - Product substitution issue [None]
  - Vomiting [None]
  - Migraine [None]

NARRATIVE: CASE EVENT DATE: 20150619
